FAERS Safety Report 15682983 (Version 1)
Quarter: 2018Q4

REPORT INFORMATION
  Report Type: Spontaneous
  Country: FR (occurrence: FR)
  Receive Date: 20181203
  Receipt Date: 20181203
  Transmission Date: 20190205
  Serious: Yes (Life-Threatening, Other)
  Sender: FDA-Public Use
  Company Number: FR-AMGEN-FRASP2018170810

PATIENT
  Age: 64 Year
  Sex: Male
  Weight: 84.7 kg

DRUGS (1)
  1. NEULASTA [Suspect]
     Active Substance: PEGFILGRASTIM
     Indication: NEUTROPENIA
     Dosage: 6 MG, ONE TIME DOSE
     Route: 058
     Dates: start: 20181109, end: 20181109

REACTIONS (4)
  - Malaise [Recovered/Resolved]
  - Hyperthermia [Recovered/Resolved]
  - Oedema peripheral [Recovered/Resolved]
  - Circulatory collapse [Recovered/Resolved]

NARRATIVE: CASE EVENT DATE: 20181109
